FAERS Safety Report 21844420 (Version 1)
Quarter: 2023Q1

REPORT INFORMATION
  Report Type: Spontaneous
  Country: US (occurrence: US)
  Receive Date: 20230110
  Receipt Date: 20230110
  Transmission Date: 20230418
  Serious: No
  Sender: FDA-Public Use
  Company Number: US-JAZZ-2022-US-038412

PATIENT

DRUGS (1)
  1. RYLAZE [Suspect]
     Active Substance: ASPARAGINASE ERWINIA CHRYSANTHEMI (RECOMBINANT)-RYWN
     Indication: Product used for unknown indication
     Dosage: 25 MILLIGRAM/SQ. METER

REACTIONS (3)
  - Nausea [Unknown]
  - Vomiting [Unknown]
  - Hyperammonaemia [Unknown]
